FAERS Safety Report 5565578-3 (Version None)
Quarter: 2007Q4

REPORT INFORMATION
  Report Type: 
  Country: None (occurrence: None)
  Receive Date: 20071218
  Receipt Date: 20071210
  Transmission Date: 20080405
  Serious: Yes (Other)
  Sender: FDA-Public Use
  Company Number: US-PFIZER INC-2007103774

PATIENT
  Age: 76 Year
  Sex: Female
  Weight: 59 kg

DRUGS (8)
  1. DETROL LA [Suspect]
     Indication: NOCTURIA
  2. LISINOPRIL [Concomitant]
     Indication: HYPERTENSION
  3. FOSAMAX [Concomitant]
  4. ACETYLSALICYLIC ACID SRT [Concomitant]
  5. VITAMINS [Concomitant]
  6. LAXATIVES [Concomitant]
     Indication: CONSTIPATION
  7. DOCUSATE SODIUM [Concomitant]
     Indication: CONSTIPATION
  8. SENOKOT [Concomitant]
     Indication: CONSTIPATION

REACTIONS (4)
  - ABDOMINAL PAIN UPPER [None]
  - DRUG INEFFECTIVE [None]
  - HYPERTENSION [None]
  - HYPOTENSION [None]
